FAERS Safety Report 16207564 (Version 2)
Quarter: 2019Q2

REPORT INFORMATION
  Report Type: Spontaneous
  Country: US (occurrence: US)
  Receive Date: 20190417
  Receipt Date: 20190425
  Transmission Date: 20190711
  Serious: No
  Sender: FDA-Public Use
  Company Number: US-PFIZER INC-2019162550

PATIENT
  Age: 55 Year
  Sex: Male
  Weight: 63.49 kg

DRUGS (2)
  1. METOPROLOL. [Concomitant]
     Active Substance: METOPROLOL
     Indication: CORONARY ARTERY BYPASS
     Dosage: 50 MG, UNK
  2. ATORVASTATIN CALCIUM. [Suspect]
     Active Substance: ATORVASTATIN CALCIUM
     Indication: HYPERCHOLESTEROLAEMIA
     Dosage: 40 MG, 2X/DAY
     Route: 048
     Dates: start: 2009

REACTIONS (2)
  - Product use issue [Unknown]
  - Alopecia [Unknown]
